FAERS Safety Report 9054650 (Version 1)
Quarter: 2013Q1

REPORT INFORMATION
  Report Type: Spontaneous
  Country: IT (occurrence: IT)
  Receive Date: 20130208
  Receipt Date: 20130208
  Transmission Date: 20140127
  Serious: Yes (Hospitalization, Other)
  Sender: FDA-Public Use
  Company Number: IT-BRISTOL-MYERS SQUIBB COMPANY-17300062

PATIENT
  Age: 68 Year
  Sex: Male
  Weight: 115 kg

DRUGS (12)
  1. COUMADIN TABS 5 MG [Suspect]
     Indication: PROPHYLAXIS
     Route: 048
     Dates: start: 20120101, end: 20121230
  2. TORADOL [Suspect]
     Indication: RENAL COLIC
     Dosage: TAB
     Route: 048
     Dates: start: 20121227, end: 20121227
  3. CARDIOASPIRIN [Suspect]
     Indication: PROPHYLAXIS
     Dosage: TAB
     Route: 048
     Dates: start: 19960101, end: 20121230
  4. BISOPROLOL [Concomitant]
     Dosage: TAB
     Route: 048
  5. RAMIPRIL [Concomitant]
     Dosage: TAB
     Route: 048
  6. DOXAZOSIN [Concomitant]
     Dosage: TAB
     Route: 048
  7. MICARDIS [Concomitant]
     Dosage: TAB
     Route: 048
  8. LANTUS [Concomitant]
     Indication: TYPE 1 DIABETES MELLITUS
     Dosage: 1DF:100 IU/ML SOLUTION FOR INJECTION^ DOSAGE/10/INTERNATIONAL/UNIT/SC (LESS THAN 100)
     Route: 048
  9. EUTIROX [Concomitant]
     Dosage: TAB
     Route: 048
  10. LASIX [Concomitant]
     Dosage: LASIX ^25 MG TABLETS
     Route: 048
  11. ALLOPURINOL [Concomitant]
     Dosage: ALLOPURINOL MOLTENI ^300 MG TABLETS
     Route: 048
  12. TORVAST [Concomitant]
     Dosage: TAB
     Route: 048

REACTIONS (6)
  - Gastrointestinal haemorrhage [Recovering/Resolving]
  - Gastric ulcer haemorrhage [Recovering/Resolving]
  - Renal haematoma [Recovering/Resolving]
  - International normalised ratio increased [Recovering/Resolving]
  - Anaemia [Recovering/Resolving]
  - Injury [Unknown]
